FAERS Safety Report 16062043 (Version 11)
Quarter: 2022Q1

REPORT INFORMATION
  Report Type: Report from Study
  Country: CN (occurrence: None)
  Receive Date: 20190312
  Receipt Date: 20220317
  Transmission Date: 20220423
  Serious: Yes (Hospitalization)
  Sender: FDA-Public Use
  Company Number: CN-ROCHE-2278278

PATIENT
  Age: 49 Year
  Sex: Female
  Weight: 56 kg

DRUGS (87)
  1. ATEZOLIZUMAB [Suspect]
     Active Substance: ATEZOLIZUMAB
     Indication: Ovarian cancer
     Dosage: DATE OF MOST RECENT DOSE OF BLINDED ATEZOLIZUMAB PRIOR TO AE ON 19/DEC/2018 AND PRIOR TO SAE ONSET O
     Route: 041
     Dates: start: 20181127
  2. PACLITAXEL [Suspect]
     Active Substance: PACLITAXEL
     Indication: Ovarian cancer
     Dosage: DOSE OF LAST PACLITAXEL ADMINISTERED PRIOR TO AE/SAE ONSET- 267 MG?DATE OF MOST RECENT DOSE OF PACLI
     Route: 042
     Dates: start: 20181127
  3. PACLITAXEL [Suspect]
     Active Substance: PACLITAXEL
     Indication: Fallopian tube cancer
  4. PACLITAXEL [Suspect]
     Active Substance: PACLITAXEL
     Indication: Peritoneal neoplasm
  5. CARBOPLATIN [Suspect]
     Active Substance: CARBOPLATIN
     Indication: Ovarian cancer
     Dosage: DATE OF MOST RECENT DOSE OF CARBOPLATIN PRIOR TO AE (800 MG) ON 19/DEC/2018 AND PRIOR TO SAE (650 MG
     Route: 042
     Dates: start: 20181127
  6. CARBOPLATIN [Suspect]
     Active Substance: CARBOPLATIN
     Indication: Fallopian tube cancer
  7. CARBOPLATIN [Suspect]
     Active Substance: CARBOPLATIN
     Indication: Peritoneal neoplasm
  8. BEVACIZUMAB [Suspect]
     Active Substance: BEVACIZUMAB
     Indication: Ovarian cancer
     Dosage: DOSE OF LAST BEVACIZUMAB ADMINISTERED PRIOR TO AE/SAE ONSET- 795 MG?DATE OF MOST RECENT DOSE OF BEV
     Route: 042
     Dates: start: 20181219
  9. BLACK COHOSH [Concomitant]
     Active Substance: BLACK COHOSH
     Indication: Menopausal symptoms
     Dates: start: 20181102, end: 20190203
  10. APREPITANT [Concomitant]
     Active Substance: APREPITANT
     Indication: Vomiting
     Dates: start: 20190208, end: 20190210
  11. APREPITANT [Concomitant]
     Active Substance: APREPITANT
     Dates: start: 20190117, end: 20190119
  12. APREPITANT [Concomitant]
     Active Substance: APREPITANT
     Dates: start: 20190309, end: 20190311
  13. APREPITANT [Concomitant]
     Active Substance: APREPITANT
     Dates: start: 20190405, end: 20190407
  14. POTASSIUM CHLORIDE [Concomitant]
     Active Substance: POTASSIUM CHLORIDE
     Dates: start: 20190208, end: 20190209
  15. POTASSIUM CHLORIDE [Concomitant]
     Active Substance: POTASSIUM CHLORIDE
     Dates: start: 20190117, end: 20190118
  16. POTASSIUM CHLORIDE [Concomitant]
     Active Substance: POTASSIUM CHLORIDE
     Dates: start: 20190406, end: 20190406
  17. POTASSIUM CHLORIDE [Concomitant]
     Active Substance: POTASSIUM CHLORIDE
     Dates: start: 20181219, end: 20181220
  18. POTASSIUM CHLORIDE [Concomitant]
     Active Substance: POTASSIUM CHLORIDE
     Dates: start: 20190310, end: 20190310
  19. DEXAMETHASONE ACETATE [Concomitant]
     Active Substance: DEXAMETHASONE ACETATE
     Route: 048
     Dates: start: 20190207, end: 20190208
  20. DEXAMETHASONE ACETATE [Concomitant]
     Active Substance: DEXAMETHASONE ACETATE
     Route: 048
     Dates: start: 20181218, end: 20181219
  21. DEXAMETHASONE ACETATE [Concomitant]
     Active Substance: DEXAMETHASONE ACETATE
     Route: 048
     Dates: start: 20190116, end: 20190117
  22. DEXAMETHASONE ACETATE [Concomitant]
     Active Substance: DEXAMETHASONE ACETATE
     Route: 048
     Dates: start: 20190308, end: 20190309
  23. DEXAMETHASONE ACETATE [Concomitant]
     Active Substance: DEXAMETHASONE ACETATE
     Route: 048
     Dates: start: 20190404, end: 20190405
  24. DEXTROSE [Concomitant]
     Active Substance: DEXTROSE
     Dates: start: 20190208, end: 20190209
  25. DIPHENHYDRAMINE HYDROCHLORIDE [Concomitant]
     Active Substance: DIPHENHYDRAMINE HYDROCHLORIDE
     Dates: start: 20190208, end: 20190208
  26. DIPHENHYDRAMINE HYDROCHLORIDE [Concomitant]
     Active Substance: DIPHENHYDRAMINE HYDROCHLORIDE
     Dates: start: 20181219, end: 20181219
  27. DIPHENHYDRAMINE HYDROCHLORIDE [Concomitant]
     Active Substance: DIPHENHYDRAMINE HYDROCHLORIDE
     Dates: start: 20190117, end: 20190117
  28. DIPHENHYDRAMINE HYDROCHLORIDE [Concomitant]
     Active Substance: DIPHENHYDRAMINE HYDROCHLORIDE
     Dates: start: 20190309, end: 20190309
  29. DIPHENHYDRAMINE HYDROCHLORIDE [Concomitant]
     Active Substance: DIPHENHYDRAMINE HYDROCHLORIDE
     Dates: start: 20190405, end: 20190405
  30. CIMETIDINE [Concomitant]
     Active Substance: CIMETIDINE
     Dates: start: 20190208, end: 20190208
  31. CIMETIDINE [Concomitant]
     Active Substance: CIMETIDINE
     Dates: start: 20181219, end: 20181219
  32. CIMETIDINE [Concomitant]
     Active Substance: CIMETIDINE
     Dates: start: 20190117, end: 20190117
  33. CIMETIDINE [Concomitant]
     Active Substance: CIMETIDINE
     Dates: start: 20190309, end: 20190309
  34. CIMETIDINE [Concomitant]
     Active Substance: CIMETIDINE
     Dates: start: 20190405, end: 20190405
  35. DEXAMETHASONE SODIUM PHOSPHATE [Concomitant]
     Active Substance: DEXAMETHASONE SODIUM PHOSPHATE
     Route: 042
     Dates: start: 20190208, end: 20190208
  36. DEXAMETHASONE SODIUM PHOSPHATE [Concomitant]
     Active Substance: DEXAMETHASONE SODIUM PHOSPHATE
     Route: 042
     Dates: start: 20181219, end: 20181219
  37. DEXAMETHASONE SODIUM PHOSPHATE [Concomitant]
     Active Substance: DEXAMETHASONE SODIUM PHOSPHATE
     Route: 042
     Dates: start: 20190117, end: 20190117
  38. DEXAMETHASONE SODIUM PHOSPHATE [Concomitant]
     Active Substance: DEXAMETHASONE SODIUM PHOSPHATE
     Route: 042
     Dates: start: 20190309, end: 20190309
  39. DEXAMETHASONE SODIUM PHOSPHATE [Concomitant]
     Active Substance: DEXAMETHASONE SODIUM PHOSPHATE
     Route: 042
     Dates: start: 20190310, end: 20190310
  40. DEXAMETHASONE SODIUM PHOSPHATE [Concomitant]
     Active Substance: DEXAMETHASONE SODIUM PHOSPHATE
     Route: 042
     Dates: start: 20190405, end: 20190405
  41. RAMOSETRON HYDROCHLORIDE [Concomitant]
     Active Substance: RAMOSETRON HYDROCHLORIDE
     Indication: Vomiting
     Dates: start: 20190208, end: 20190209
  42. RAMOSETRON HYDROCHLORIDE [Concomitant]
     Active Substance: RAMOSETRON HYDROCHLORIDE
     Dates: start: 20181219, end: 20181220
  43. RAMOSETRON HYDROCHLORIDE [Concomitant]
     Active Substance: RAMOSETRON HYDROCHLORIDE
     Dates: start: 20190117, end: 20190118
  44. RAMOSETRON HYDROCHLORIDE [Concomitant]
     Active Substance: RAMOSETRON HYDROCHLORIDE
     Dates: start: 20190309, end: 20190310
  45. RAMOSETRON HYDROCHLORIDE [Concomitant]
     Active Substance: RAMOSETRON HYDROCHLORIDE
     Dates: start: 20190405, end: 20190406
  46. RAMOSETRON HYDROCHLORIDE [Concomitant]
     Active Substance: RAMOSETRON HYDROCHLORIDE
     Dates: start: 20190427, end: 20190427
  47. RAMOSETRON HYDROCHLORIDE [Concomitant]
     Active Substance: RAMOSETRON HYDROCHLORIDE
     Dates: start: 20190518, end: 20190519
  48. VITAMIN C [Concomitant]
     Active Substance: ASCORBIC ACID
     Dates: start: 20190209, end: 20190209
  49. VITAMIN C [Concomitant]
     Active Substance: ASCORBIC ACID
     Dates: start: 20190306, end: 20190306
  50. CLOTRIMAZOLE [Concomitant]
     Active Substance: CLOTRIMAZOLE
     Dates: start: 20190209, end: 20190209
  51. FLUCONAZOLE [Concomitant]
     Active Substance: FLUCONAZOLE
     Dates: start: 20190209, end: 20190209
  52. LORATADINE [Concomitant]
     Active Substance: LORATADINE
     Indication: Hypersensitivity
     Dates: start: 20181215, end: 20181217
  53. CALAMINE [Concomitant]
     Active Substance: CALAMINE\FERRIC OXIDE RED\ZINC OXIDE
     Indication: Rash
     Dates: start: 20181215, end: 20181217
  54. CALAMINE [Concomitant]
     Active Substance: CALAMINE\FERRIC OXIDE RED\ZINC OXIDE
     Route: 067
     Dates: start: 20181225, end: 20181225
  55. PHOSPHOLIPID [Concomitant]
     Active Substance: PHOSPHOLIPID
     Dates: start: 20181219, end: 20181220
  56. ESTAZOLAM [Concomitant]
     Active Substance: ESTAZOLAM
     Indication: Insomnia
     Dates: start: 20181219, end: 20181219
  57. ESTAZOLAM [Concomitant]
     Active Substance: ESTAZOLAM
     Dates: start: 20190115, end: 20190116
  58. ESTAZOLAM [Concomitant]
     Active Substance: ESTAZOLAM
     Dates: start: 20190404, end: 20190404
  59. LACTULOSE [Concomitant]
     Active Substance: LACTULOSE
     Dates: start: 20190117, end: 20190118
  60. LACTULOSE [Concomitant]
     Active Substance: LACTULOSE
     Dates: start: 20190119, end: 20190120
  61. LACTULOSE [Concomitant]
     Active Substance: LACTULOSE
     Dates: start: 20190311, end: 20190312
  62. ALUMINIUM PHOSPHATE GEL [Concomitant]
     Dates: start: 20190118, end: 20190118
  63. ALUMINIUM PHOSPHATE GEL [Concomitant]
     Dates: start: 20190119, end: 20190121
  64. OPRELVEKIN [Concomitant]
     Active Substance: OPRELVEKIN
     Dates: start: 20190106, end: 20190110
  65. OPRELVEKIN [Concomitant]
     Active Substance: OPRELVEKIN
     Dates: start: 20190219, end: 20190302
  66. OPRELVEKIN [Concomitant]
     Active Substance: OPRELVEKIN
     Dates: start: 20190327, end: 20190329
  67. OPRELVEKIN [Concomitant]
     Active Substance: OPRELVEKIN
     Dates: start: 20190331, end: 20190402
  68. OPRELVEKIN [Concomitant]
     Active Substance: OPRELVEKIN
     Dates: start: 20190424, end: 20190425
  69. POVIDONE-IODINE [Concomitant]
     Active Substance: POVIDONE-IODINE
     Indication: Rash
     Dates: start: 20181225, end: 20190108
  70. POVIDONE-IODINE [Concomitant]
     Active Substance: POVIDONE-IODINE
     Dates: start: 20190404, end: 20190404
  71. ERYTHROMYCIN [Concomitant]
     Active Substance: ERYTHROMYCIN
     Indication: Rash
     Dates: start: 20181226, end: 20190108
  72. CEFETAMET PIVOXIL HYDROCHLORIDE [Concomitant]
     Indication: Cough
     Dates: start: 20181231, end: 20190104
  73. CEFIXIME [Concomitant]
     Active Substance: CEFIXIME
     Dates: start: 20190125, end: 20190127
  74. ORNIDAZOLE [Concomitant]
     Active Substance: ORNIDAZOLE
     Dates: start: 20190125, end: 20190127
  75. LEUCOGEN (CHINA) [Concomitant]
     Indication: Platelet count decreased
     Dates: start: 20190215, end: 20190302
  76. LEUCOGEN (CHINA) [Concomitant]
     Dates: start: 20190311, end: 20190403
  77. LEUCOGEN (CHINA) [Concomitant]
     Dates: start: 20190422, end: 20190425
  78. LEUCOGEN (CHINA) [Concomitant]
     Dates: start: 20190428, end: 20190516
  79. LEUCOGEN (CHINA) [Concomitant]
     Dates: start: 20190519, end: 20190602
  80. LIDOCAINE HYDROCHLORIDE [Concomitant]
     Active Substance: LIDOCAINE HYDROCHLORIDE
     Dates: start: 20190404, end: 20190404
  81. OMEPRAZOLE [Concomitant]
     Active Substance: OMEPRAZOLE
     Dates: start: 20190311, end: 20190311
  82. ENOXAPARIN SODIUM [Concomitant]
     Active Substance: ENOXAPARIN SODIUM
     Dates: start: 20190517, end: 20190519
  83. ENOXAPARIN SODIUM [Concomitant]
     Active Substance: ENOXAPARIN SODIUM
     Dates: start: 20190517, end: 20190524
  84. RIVAROXABAN [Concomitant]
     Active Substance: RIVAROXABAN
     Dates: start: 20190525, end: 20190715
  85. DIOSMIN [Concomitant]
     Active Substance: DIOSMIN
     Dates: start: 20190425, end: 20190701
  86. HEPARIN SODIUM [Concomitant]
     Active Substance: HEPARIN SODIUM
     Dates: start: 20190207, end: 20190209
  87. DIAZEPAM [Concomitant]
     Active Substance: DIAZEPAM
     Indication: Insomnia
     Route: 048
     Dates: start: 20190208, end: 20190208

REACTIONS (1)
  - Anaemia [Recovered/Resolved]

NARRATIVE: CASE EVENT DATE: 20190106
